FAERS Safety Report 11699342 (Version 1)
Quarter: 2015Q4

REPORT INFORMATION
  Report Type: Spontaneous
  Country: US (occurrence: US)
  Receive Date: 20151104
  Receipt Date: 20151104
  Transmission Date: 20160304
  Serious: Yes (Hospitalization)
  Sender: FDA-Public Use
  Company Number: US-JNJFOC-20151017237

PATIENT
  Sex: Female
  Weight: 97.71 kg

DRUGS (23)
  1. BENADRYL [Suspect]
     Active Substance: DIPHENHYDRAMINE HYDROCHLORIDE
     Indication: DISORIENTATION
     Route: 065
  2. BENADRYL [Suspect]
     Active Substance: DIPHENHYDRAMINE HYDROCHLORIDE
     Indication: CONFUSIONAL STATE
     Route: 065
  3. BACLOFEN. [Suspect]
     Active Substance: BACLOFEN
     Indication: BACK PAIN
     Route: 065
  4. FISH OIL [Concomitant]
     Active Substance: FISH OIL
     Indication: HYPERLIPIDAEMIA
     Route: 065
     Dates: start: 2003
  5. MULTIVITAMINS [Concomitant]
     Active Substance: VITAMINS
     Indication: NUTRITIONAL SUPPLEMENTATION
     Route: 065
     Dates: start: 1965
  6. OCUVITE WITH LUTEIN [Concomitant]
     Indication: MACULAR DEGENERATION
     Route: 065
     Dates: start: 2013
  7. SIMVASTATIN. [Concomitant]
     Active Substance: SIMVASTATIN
     Indication: HYPERCHOLESTEROLAEMIA
     Dosage: QHS (EVERY BEDTIME)
     Route: 065
     Dates: start: 2007
  8. BENADRYL [Suspect]
     Active Substance: DIPHENHYDRAMINE HYDROCHLORIDE
     Indication: MUSCLE CONTRACTIONS INVOLUNTARY
     Route: 065
  9. GEMFIBROZIL. [Concomitant]
     Active Substance: GEMFIBROZIL
     Indication: HYPERLIPIDAEMIA
     Route: 065
     Dates: start: 2007
  10. SUPER B COMPLEX [Concomitant]
     Active Substance: CYANOCOBALAMIN\DEXPANTHENOL\NIACINAMIDE\PYRIDOXINE HYDROCHLORIDE\RIBOFLAVIN 5^-PHOSPHATE SODIUM\THIAMINE HYDROCHLORIDE\VITAMIN B COMPLEX
     Indication: NUTRITIONAL SUPPLEMENTATION
     Route: 065
     Dates: start: 2013
  11. FAMOTIDINE. [Concomitant]
     Active Substance: FAMOTIDINE
     Indication: DYSPEPSIA
     Route: 065
     Dates: start: 2014
  12. COGENTIN [Suspect]
     Active Substance: BENZTROPINE MESYLATE
     Indication: DISORIENTATION
     Route: 065
  13. COGENTIN [Suspect]
     Active Substance: BENZTROPINE MESYLATE
     Indication: MUSCLE CONTRACTIONS INVOLUNTARY
     Route: 065
  14. BENZOTROPINE [Concomitant]
     Active Substance: BENZTROPINE
     Indication: MUSCLE CONTRACTIONS INVOLUNTARY
     Dosage: {1 MONTH
     Route: 065
     Dates: start: 20151006
  15. COGENTIN [Suspect]
     Active Substance: BENZTROPINE MESYLATE
     Indication: CONFUSIONAL STATE
     Route: 065
  16. CALCIUM/D3 [Concomitant]
     Active Substance: CALCIUM\CHOLECALCIFEROL
     Indication: OSTEOPENIA
     Route: 065
     Dates: start: 2010
  17. BACTRIM DS [Concomitant]
     Active Substance: SULFAMETHOXAZOLE\TRIMETHOPRIM
     Indication: URINARY TRACT INFECTION
     Dosage: { 1 MONTTH
     Route: 065
     Dates: start: 20151004
  18. TYLENOL PM [Concomitant]
     Active Substance: ACETAMINOPHEN\DIPHENHYDRAMINE
     Indication: INSOMNIA
     Dosage: 1 TAB PRN,
     Route: 065
     Dates: start: 2007
  19. FIBER SUPPLEMENT [Concomitant]
     Indication: DIVERTICULITIS
     Dosage: 1 TEAS BID
     Route: 065
     Dates: start: 20150105
  20. VICODIN [Concomitant]
     Active Substance: ACETAMINOPHEN\HYDROCODONE BITARTRATE
     Indication: MUSCLE SPASMS
     Dosage: 1 Q 6H PRN, {1 MONTH
     Route: 065
     Dates: start: 20151004
  21. ATENOLOL/CHLORTHALIDONE [Concomitant]
     Active Substance: ATENOLOL\CHLORTHALIDONE
     Indication: HYPERTENSION
     Dosage: 50MG/25MG
     Route: 065
     Dates: start: 20150626
  22. ACETYLSALICYLIC ACID [Concomitant]
     Active Substance: ASPIRIN
     Indication: CARDIOVASCULAR EVENT PROPHYLAXIS
     Route: 065
     Dates: start: 2000
  23. METRONIDAZOLE. [Concomitant]
     Active Substance: METRONIDAZOLE
     Indication: URINARY TRACT INFECTION
     Dosage: {1 MONTH
     Route: 065
     Dates: start: 20151004

REACTIONS (8)
  - Muscle contractions involuntary [None]
  - Urinary tract infection [Unknown]
  - Disorientation [None]
  - Vomiting [None]
  - Product use issue [Unknown]
  - Dizziness [None]
  - Malaise [None]
  - Confusional state [Unknown]
